FAERS Safety Report 4618031-5 (Version None)
Quarter: 2005Q1

REPORT INFORMATION
  Report Type: 
  Country: None (occurrence: None)
  Receive Date: 20050322
  Receipt Date: 20050307
  Transmission Date: 20050727
  Serious: Yes (Hospitalization)
  Sender: FDA-Public Use
  Company Number: 2005UW03789

PATIENT
  Age: 69 Year
  Sex: Male
  Weight: 75.0249 kg

DRUGS (12)
  1. LISINOPRIL [Suspect]
     Dosage: 2.5 MG QD PO
     Route: 048
  2. METOPROLOL TARTRATE [Suspect]
     Dosage: 25 MG BID PO
     Route: 048
  3. BIVALIRUDIN [Suspect]
     Dosage: 550 M G DAILY IV
     Route: 042
     Dates: start: 20040902, end: 20040902
  4. CARVEDILOL [Suspect]
     Dosage: 2.125 MG PO
     Route: 048
  5. MIRAPEX  PHARMACIA + UPJOHN [Concomitant]
  6. WARFARIN SODIUM [Concomitant]
  7. DOCUSATE [Concomitant]
  8. LOVASTATIN [Concomitant]
  9. VICODIN [Concomitant]
  10. SELEGILINE HCL [Concomitant]
  11. AMANTADINE [Concomitant]
  12. SINEMET [Concomitant]

REACTIONS (7)
  - CHEST DISCOMFORT [None]
  - DIZZINESS [None]
  - EJECTION FRACTION DECREASED [None]
  - ELECTROCARDIOGRAM T WAVE INVERSION [None]
  - VENTRICULAR DYSFUNCTION [None]
  - VENTRICULAR TACHYCARDIA [None]
  - VERTIGO [None]
